FAERS Safety Report 18966395 (Version 1)
Quarter: 2021Q1

REPORT INFORMATION
  Report Type: Spontaneous
  Country: GB (occurrence: GB)
  Receive Date: 20210304
  Receipt Date: 20210304
  Transmission Date: 20210420
  Serious: Yes (Other)
  Sender: FDA-Public Use
  Company Number: GB-ADVANZ PHARMA-202102001482

PATIENT

DRUGS (1)
  1. PREDNISOLONE. [Suspect]
     Active Substance: PREDNISOLONE
     Indication: CROHN^S DISEASE
     Dosage: DOSE: UNKNOWN BUT 5MG DAILY STILL CAUSED REACTION
     Route: 048

REACTIONS (6)
  - Diarrhoea [Unknown]
  - Pharyngeal paraesthesia [Unknown]
  - Hypersensitivity [Unknown]
  - Dyspnoea [Recovered/Resolved]
  - Myalgia [Recovered/Resolved]
  - Haematochezia [Unknown]
